FAERS Safety Report 25277713 (Version 1)
Quarter: 2025Q2

REPORT INFORMATION
  Report Type: Report from Study
  Country: US (occurrence: US)
  Receive Date: 20250507
  Receipt Date: 20250507
  Transmission Date: 20250716
  Serious: Yes (Hospitalization)
  Sender: EISAI
  Company Number: US-Eisai-EC-2025-188680

PATIENT
  Age: 64 Year
  Sex: Female
  Weight: 72 kg

DRUGS (37)
  1. LENVIMA [Suspect]
     Active Substance: LENVATINIB
     Indication: Thyroid cancer
     Dates: start: 20240124, end: 2024
  2. LENVIMA [Suspect]
     Active Substance: LENVATINIB
     Dates: start: 2024, end: 2024
  3. LENVIMA [Suspect]
     Active Substance: LENVATINIB
     Dates: start: 20250322
  4. ADVIL [Concomitant]
     Active Substance: IBUPROFEN
  5. DEXAMETHASONE [Concomitant]
     Active Substance: DEXAMETHASONE
  6. ENZYME DIGEST [Concomitant]
  7. LIDOCAINE\PRILOCAINE [Concomitant]
     Active Substance: LIDOCAINE\PRILOCAINE
  8. MAGNESIUM [Concomitant]
     Active Substance: MAGNESIUM
  9. VITAMINS [Concomitant]
     Active Substance: VITAMINS
  10. ONDANSETRON [Concomitant]
     Active Substance: ONDANSETRON
  11. OXYCODONE [Concomitant]
     Active Substance: OXYCODONE
  12. TYLENOL [Concomitant]
     Active Substance: ACETAMINOPHEN
  13. VITAMIN A [Concomitant]
     Active Substance: VITAMIN A
  14. VITAMIN D3 [Concomitant]
     Active Substance: CHOLECALCIFEROL
  15. STOOL SOFTENER (DOCUSATE) [Concomitant]
     Active Substance: DOCUSATE
  16. THYROID DES [Concomitant]
  17. TRIIODO-L THYRON IR [Concomitant]
  18. CHOLACOL DIGESTION SUPPORT [Concomitant]
  19. IMMUNITY MUSHROOM [Concomitant]
  20. GABAPENTIN [Concomitant]
     Active Substance: GABAPENTIN
  21. NAC [Concomitant]
  22. ZOLEDRONIC ACID [Concomitant]
     Active Substance: ZOLEDRONIC ACID
  23. AMLODIPINE BESYLATE [Concomitant]
     Active Substance: AMLODIPINE BESYLATE
  24. NITROSTAT [Concomitant]
     Active Substance: NITROGLYCERIN
  25. UREA [Concomitant]
     Active Substance: UREA
  26. VITAMIN K1 [Concomitant]
     Active Substance: PHYTONADIONE
  27. BIOTIN [Concomitant]
     Active Substance: BIOTIN
  28. CALCIUM LACTATE [Concomitant]
     Active Substance: CALCIUM LACTATE
  29. DIPHENHYDRAMINE [Concomitant]
     Active Substance: DIPHENHYDRAMINE
  30. DULOXETINE [Concomitant]
     Active Substance: DULOXETINE
  31. LIDOCAINE VISCOUS [Concomitant]
     Active Substance: LIDOCAINE HYDROCHLORIDE
  32. METHYL PROTECT 1 [Concomitant]
  33. METOCLOPRAMIDE [Concomitant]
     Active Substance: METOCLOPRAMIDE
  34. PILOCARPINE [Concomitant]
     Active Substance: PILOCARPINE
  35. SENNA [Concomitant]
     Active Substance: SENNOSIDES
  36. TRIPLE ANTIBIOTIC [Concomitant]
  37. VITAMIN D3-VITAMIN K2 [Concomitant]

REACTIONS (7)
  - Acute myocardial infarction [Not Recovered/Not Resolved]
  - Abdominal pain upper [Not Recovered/Not Resolved]
  - Fatigue [Not Recovered/Not Resolved]
  - Neck pain [Not Recovered/Not Resolved]
  - Swelling [Not Recovered/Not Resolved]
  - Hypotension [Recovering/Resolving]
  - Constipation [Not Recovered/Not Resolved]

NARRATIVE: CASE EVENT DATE: 20250401
